FAERS Safety Report 19417564 (Version 2)
Quarter: 2021Q2

REPORT INFORMATION
  Report Type: Spontaneous
  Country: NL (occurrence: NL)
  Receive Date: 20210615
  Receipt Date: 20210621
  Transmission Date: 20210717
  Serious: Yes (Other)
  Sender: FDA-Public Use
  Company Number: NL-TEVA-2021-NL-1921389

PATIENT
  Age: 50 Year
  Sex: Male
  Weight: 84 kg

DRUGS (6)
  1. ATORVASTATINE TABLET 40MG / BRAND NAME NOT SPECIFIED [Suspect]
     Active Substance: ATORVASTATIN
     Indication: HYPERCHOLESTEROLAEMIA
     Dosage: 40 MG (MILLIGRAM), UNIT DOSE: 1 DF
     Dates: start: 20160316, end: 20201127
  2. PERINDOPRIL TABLET 2MG (ERBUMINE) / BRAND NAME NOT SPECIFIED [Concomitant]
     Dosage: 2MG; THERAPY START AND END DATE: ASKU
  3. METOPROLOL TABLET   50MG / BRAND NAME NOT SPECIFIED [Concomitant]
     Active Substance: LETROZOLE
     Dosage: TABLET, 50 MG (MILLIGRAM); THERAPY START AND END DATE: ASKU
  4. CARBASALAATCALCIUM POEDER 100MG / ASCAL CARDIO SACHET 100MG [Concomitant]
     Dosage: THERAPY START AND END DATE: ASKU
  5. PANTOPRAZOL TABLET MSR 20MG / MAAGZUURTABLET PANTOPRAZOL HTP TABLET MS [Concomitant]
     Dosage: 40MG; THERAPY START AND END DATE: ASKU
  6. EZETIMIB TABLET 10MG / BRAND NAME NOT SPECIFIED [Concomitant]
     Active Substance: EZETIMIBE
     Dosage: TABLET, 10 MG (MILLIGRAM); THERAPY START AND END DATE: ASKU

REACTIONS (3)
  - Rhabdomyolysis [Recovering/Resolving]
  - Polymyositis [Recovering/Resolving]
  - Hepatic enzyme increased [Recovering/Resolving]

NARRATIVE: CASE EVENT DATE: 20200301
